FAERS Safety Report 7766091-5 (Version None)
Quarter: 2011Q3

REPORT INFORMATION
  Report Type: 
  Country: None (occurrence: None)
  Receive Date: 20110921
  Receipt Date: 20110914
  Transmission Date: 20111222
  Serious: Yes (Hospitalization)
  Sender: FDA-Public Use
  Company Number: RO-GENENTECH-310089

PATIENT
  Sex: Male
  Weight: 70 kg

DRUGS (5)
  1. SILIMARIN [Concomitant]
     Indication: PRODUCT USED FOR UNKNOWN INDICATION
     Dosage: UNK
     Dates: start: 20100902, end: 20101213
  2. FOLIC ACID [Concomitant]
     Indication: PRODUCT USED FOR UNKNOWN INDICATION
     Dosage: UNK
     Dates: start: 20100902, end: 20101213
  3. RITUXIMAB [Suspect]
     Indication: CHRONIC LYMPHOCYTIC LEUKAEMIA
     Dosage: 686 MG, Q28D
     Route: 042
     Dates: start: 20100921
  4. CHLORAMBUCIL [Suspect]
     Indication: CHRONIC LYMPHOCYTIC LEUKAEMIA
     Dosage: 35 MG, Q15D
     Route: 048
     Dates: start: 20100921, end: 20101203
  5. RITUXIMAB [Suspect]
     Dosage: 915 MG, Q28D
     Route: 042
     Dates: start: 20101019, end: 20101203

REACTIONS (3)
  - PNEUMONIA [None]
  - CARDIOPULMONARY FAILURE [None]
  - LUNG SQUAMOUS CELL CARCINOMA STAGE UNSPECIFIED [None]
